FAERS Safety Report 8394422-4 (Version None)
Quarter: 2012Q2

REPORT INFORMATION
  Report Type: 
  Country: None (occurrence: None)
  Receive Date: 20120530
  Receipt Date: 20120523
  Transmission Date: 20120825
  Serious: Yes (Other)
  Sender: FDA-Public Use
  Company Number: PHHY2012MX041979

PATIENT
  Sex: Female

DRUGS (7)
  1. DIOVAN [Suspect]
     Indication: HYPERTENSION
     Dosage: 2 DF (320MG) DAILY
  2. LOVAZA [Concomitant]
     Dosage: 1 DF, BID
  3. CALCIUM [Concomitant]
     Dosage: 500 MG
  4. CENTRUM [Concomitant]
     Dosage: 1 DF, QD
     Dates: start: 20120508
  5. PRAVASTATIN [Concomitant]
     Indication: BLOOD CHOLESTEROL ABNORMAL
     Dosage: 10 MG, QD
  6. CALCITRIOL [Concomitant]
     Dosage: 0.25 MG, QD
  7. VYTORIN [Concomitant]
     Dosage: 1 DF, QD

REACTIONS (2)
  - HEAD INJURY [None]
  - FALL [None]
